FAERS Safety Report 12862456 (Version 1)
Quarter: 2016Q4

REPORT INFORMATION
  Report Type: Spontaneous
  Country: US (occurrence: US)
  Receive Date: 20161018
  Receipt Date: 20161018
  Transmission Date: 20170207
  Serious: Yes (Hospitalization)
  Sender: FDA-Public Use
  Company Number: None

PATIENT
  Age: 23 Year
  Sex: Female

DRUGS (1)
  1. SULFAMETHOXAZOLE/TRIMETHOPRIM [Suspect]
     Active Substance: SULFAMETHOXAZOLE\TRIMETHOPRIM
     Indication: ACNE
     Route: 048
     Dates: start: 20160714, end: 20160818

REACTIONS (8)
  - Splenomegaly [None]
  - Abdominal pain [None]
  - Muscle spasms [None]
  - Cholecystitis acute [None]
  - Drug reaction with eosinophilia and systemic symptoms [None]
  - Vomiting [None]
  - Pleural effusion [None]
  - Diarrhoea [None]

NARRATIVE: CASE EVENT DATE: 20160818
